FAERS Safety Report 6984101-X (Version None)
Quarter: 2010Q3

REPORT INFORMATION
  Report Type: 
  Country: None (occurrence: None)
  Receive Date: 20100915
  Receipt Date: 20090528
  Transmission Date: 20110219
  Serious: No
  Sender: FDA-Public Use
  Company Number: US-WYE-H09539509

PATIENT
  Sex: Female
  Weight: 90.8 kg

DRUGS (7)
  1. PRISTIQ [Suspect]
     Indication: DEPRESSION
     Route: 048
     Dates: start: 20090501
  2. PROCARDIA [Concomitant]
  3. AMBIEN [Concomitant]
     Indication: INSOMNIA
     Dosage: 10 MG HOUR SLEEP
  4. GLYBURIDE [Concomitant]
  5. VITAMIN K TAB [Concomitant]
  6. COZAAR [Concomitant]
  7. METOPROLOL TARTRATE [Concomitant]

REACTIONS (2)
  - CONDITION AGGRAVATED [None]
  - INSOMNIA [None]
